FAERS Safety Report 16668694 (Version 1)
Quarter: 2019Q3

REPORT INFORMATION
  Report Type: Spontaneous
  Country: US (occurrence: US)
  Receive Date: 20190805
  Receipt Date: 20190805
  Transmission Date: 20191004
  Serious: Yes (Other)
  Sender: FDA-Public Use
  Company Number: US-JNJFOC-20190740003

PATIENT
  Sex: Male

DRUGS (4)
  1. DARZALEX [Suspect]
     Active Substance: DARATUMUMAB
     Route: 042
     Dates: start: 201907
  2. DARZALEX [Suspect]
     Active Substance: DARATUMUMAB
     Route: 042
  3. DARZALEX [Suspect]
     Active Substance: DARATUMUMAB
     Indication: PLASMA CELL MYELOMA
     Route: 042
     Dates: start: 201811
  4. DARZALEX [Suspect]
     Active Substance: DARATUMUMAB
     Route: 042

REACTIONS (1)
  - Light chain analysis increased [Not Recovered/Not Resolved]

NARRATIVE: CASE EVENT DATE: 2019
